FAERS Safety Report 9712356 (Version 1)
Quarter: 2013Q4

REPORT INFORMATION
  Report Type: Spontaneous
  Country: US (occurrence: US)
  Receive Date: 20131126
  Receipt Date: 20131126
  Transmission Date: 20140711
  Serious: No
  Sender: FDA-Public Use
  Company Number: US-BRISTOL-MYERS SQUIBB COMPANY-19167964

PATIENT
  Age: 50 Year
  Sex: Male
  Weight: 96.6 kg

DRUGS (2)
  1. BYDUREON 2MG SUSPENSION [Suspect]
     Indication: TYPE 2 DIABETES MELLITUS
     Route: 058
  2. BROMOCRIPTINE MESYLATE [Concomitant]

REACTIONS (2)
  - Injection site mass [Recovered/Resolved]
  - Injection site pain [Unknown]
